FAERS Safety Report 4695247-3 (Version None)
Quarter: 2005Q2

REPORT INFORMATION
  Report Type: 
  Country: None (occurrence: None)
  Receive Date: 20050613
  Receipt Date: 20050413
  Transmission Date: 20051028
  Serious: No
  Sender: FDA-Public Use
  Company Number: 2005-00550

PATIENT
  Age: 83 Year
  Sex: Male

DRUGS (3)
  1. VELCADE [Suspect]
     Indication: MULTIPLE MYELOMA
     Dosage: SEE IMAGE
     Route: 065
     Dates: end: 20050307
  2. PROCRIT [Concomitant]
  3. ZOMETA [Concomitant]

REACTIONS (5)
  - ANOREXIA [None]
  - CONSTIPATION [None]
  - DIFFICULTY IN WALKING [None]
  - NEUROPATHY PERIPHERAL [None]
  - PAIN [None]
